FAERS Safety Report 14202752 (Version 1)
Quarter: 2017Q4

REPORT INFORMATION
  Report Type: Spontaneous
  Country: IT (occurrence: IT)
  Receive Date: 20171118
  Receipt Date: 20171118
  Transmission Date: 20180321
  Serious: Yes (Hospitalization)
  Sender: FDA-Public Use
  Company Number: IT-TEVA-2017-IT-825893

PATIENT
  Age: 16 Year
  Sex: Female

DRUGS (2)
  1. OKI 80 MG [Suspect]
     Active Substance: KETOPROFEN LYSINE
     Route: 048
     Dates: start: 20171106, end: 20171106
  2. IBUPROFEN. [Suspect]
     Active Substance: IBUPROFEN
     Route: 048
     Dates: start: 20171106, end: 20171106

REACTIONS (1)
  - Abdominal pain upper [Recovering/Resolving]

NARRATIVE: CASE EVENT DATE: 20171106
